FAERS Safety Report 6522263-9 (Version None)
Quarter: 2009Q4

REPORT INFORMATION
  Report Type: 
  Country: None (occurrence: None)
  Receive Date: 20091230
  Receipt Date: 20091224
  Transmission Date: 20100525
  Serious: Yes (Death)
  Sender: FDA-Public Use
  Company Number: GXKR2009QA13838

PATIENT
  Age: 44 Year
  Sex: Male

DRUGS (11)
  1. FLUTICASONE (NGX) [Suspect]
     Indication: CHRONIC OBSTRUCTIVE PULMONARY DISEASE
     Dosage: MAINTAINANCE
  2. METHYLPREDNISOLONE [Suspect]
     Indication: CHRONIC OBSTRUCTIVE PULMONARY DISEASE
     Dosage: 40 MG, TID
     Route: 065
  3. PREDNISOLONE [Suspect]
     Indication: CHRONIC OBSTRUCTIVE PULMONARY DISEASE
     Dosage: 40 MG, QD
     Route: 048
  4. ALBUTEROL [Concomitant]
     Indication: CHRONIC OBSTRUCTIVE PULMONARY DISEASE
  5. SALMETROL [Concomitant]
  6. THEOPHYLLINE [Concomitant]
  7. OXYGEN THERAPY [Concomitant]
  8. CEFTRIAXONE [Concomitant]
     Indication: CHRONIC OBSTRUCTIVE PULMONARY DISEASE
     Dosage: 2 G, QD
     Route: 042
  9. AZITHROMYCIN [Concomitant]
     Indication: CHRONIC OBSTRUCTIVE PULMONARY DISEASE
     Dosage: 500 MG, QD
     Route: 065
  10. IPRATROPIUM BROMIDE [Concomitant]
     Indication: CHRONIC OBSTRUCTIVE PULMONARY DISEASE
  11. AMOXICILLIN W/CLAVULANATE POTASSIUM [Concomitant]
     Indication: CHRONIC OBSTRUCTIVE PULMONARY DISEASE
     Dosage: UNK
     Route: 048

REACTIONS (17)
  - ABDOMINAL DISTENSION [None]
  - ABDOMINAL PAIN LOWER [None]
  - CHEST DISCOMFORT [None]
  - CONSTIPATION [None]
  - COUGH [None]
  - HAEMOPTYSIS [None]
  - HYPOTENSION [None]
  - INFLAMMATION [None]
  - INTESTINAL ULCER [None]
  - MECHANICAL VENTILATION [None]
  - MUCOSAL HAEMORRHAGE [None]
  - MULTI-ORGAN FAILURE [None]
  - PULMONARY ALVEOLAR HAEMORRHAGE [None]
  - RESPIRATORY DISORDER [None]
  - STRONGYLOIDIASIS [None]
  - SURGERY [None]
  - VOMITING [None]
